FAERS Safety Report 17198751 (Version 3)
Quarter: 2020Q1

REPORT INFORMATION
  Report Type: Spontaneous
  Country: CN (occurrence: CN)
  Receive Date: 20191225
  Receipt Date: 20200102
  Transmission Date: 20200409
  Serious: Yes (Death, Hospitalization)
  Sender: FDA-Public Use
  Company Number: CN-ASTRAZENECA-2019SF85969

PATIENT
  Age: 68 Year
  Sex: Male

DRUGS (3)
  1. IRESSA [Suspect]
     Active Substance: GEFITINIB
     Indication: NON-SMALL CELL LUNG CANCER
     Route: 048
  2. OXYCONTIN [Concomitant]
     Active Substance: OXYCODONE HYDROCHLORIDE
  3. TAGRISSO [Concomitant]
     Active Substance: OSIMERTINIB

REACTIONS (4)
  - Altered state of consciousness [Unknown]
  - Speech disorder [Unknown]
  - Metastases to meninges [Fatal]
  - Dysphagia [Unknown]
